FAERS Safety Report 5838196-7 (Version None)
Quarter: 2008Q3

REPORT INFORMATION
  Report Type: 
  Country: None (occurrence: None)
  Receive Date: 20080808
  Receipt Date: 20080730
  Transmission Date: 20090109
  Serious: Yes (Death, Hospitalization, Other)
  Sender: FDA-Public Use
  Company Number: NSADSS2002017316

PATIENT
  Sex: Male
  Weight: 87 kg

DRUGS (5)
  1. REMICADE [Suspect]
     Route: 041
  2. REMICADE [Suspect]
     Indication: RHEUMATOID ARTHRITIS
     Route: 041
  3. METHOTREXATE [Suspect]
     Indication: RHEUMATOID ARTHRITIS
     Route: 065
  4. LEDERTREXATE [Concomitant]
     Route: 030
  5. FOLIC ACID [Concomitant]
     Route: 065

REACTIONS (2)
  - EPSTEIN-BARR VIRUS INFECTION [None]
  - LYMPHOMA [None]
